FAERS Safety Report 13193413 (Version 1)
Quarter: 2017Q1

REPORT INFORMATION
  Report Type: Report from Study
  Country: US (occurrence: US)
  Receive Date: 20170207
  Receipt Date: 20170207
  Transmission Date: 20170428
  Serious: Yes (Death, Hospitalization)
  Sender: FDA-Public Use
  Company Number: US-JNJFOC-20170116760

PATIENT
  Age: 73 Year
  Sex: Male

DRUGS (1)
  1. IMBRUVICA [Suspect]
     Active Substance: IBRUTINIB
     Indication: CHRONIC LYMPHOCYTIC LEUKAEMIA
     Route: 048
     Dates: start: 20161129, end: 20161228

REACTIONS (5)
  - Disease progression [Fatal]
  - Neutropenia [Unknown]
  - Cardiac arrest [Fatal]
  - Infection [Fatal]
  - Colitis [Fatal]

NARRATIVE: CASE EVENT DATE: 20161227
